FAERS Safety Report 6262410-X (Version None)
Quarter: 2009Q3

REPORT INFORMATION
  Report Type: 
  Country: None (occurrence: None)
  Receive Date: 20090709
  Receipt Date: 20090701
  Transmission Date: 20100115
  Serious: Yes (Other)
  Sender: FDA-Public Use
  Company Number: GB-JNJFOC-20090701289

PATIENT
  Age: 60 Year
  Sex: Male

DRUGS (9)
  1. ITRACONAZOLE [Suspect]
     Indication: BRONCHOPULMONARY ASPERGILLOSIS ALLERGIC
     Route: 065
  2. ANAESTHETIC [Concomitant]
     Route: 065
  3. CALCICHEW D3 [Concomitant]
     Route: 065
  4. MONTELUKAST [Concomitant]
     Indication: ASTHMA
     Route: 065
  5. PARACETAMOL [Concomitant]
     Route: 065
  6. ALBUTEROL [Concomitant]
     Indication: ASTHMA
     Route: 065
  7. SERETIDE [Concomitant]
     Indication: ASTHMA
     Route: 065
  8. TIOTROPIUM BROMIDE [Concomitant]
     Indication: ASTHMA
     Route: 065
  9. TRAMADOL [Concomitant]
     Route: 065

REACTIONS (2)
  - ADRENAL INSUFFICIENCY [None]
  - CUSHINGOID [None]
